FAERS Safety Report 10074570 (Version 1)
Quarter: 2014Q2

REPORT INFORMATION
  Report Type: Spontaneous
  Country: US (occurrence: US)
  Receive Date: 20140411
  Receipt Date: 20140411
  Transmission Date: 20141212
  Serious: No
  Sender: FDA-Public Use
  Company Number: US-SA-2014SA022918

PATIENT
  Age: 69 Year
  Sex: Male

DRUGS (2)
  1. ALLEGRA D [Suspect]
     Indication: RHINORRHOEA
     Route: 048
     Dates: start: 20140219, end: 20140220
  2. ALLEGRA D [Suspect]
     Indication: NASAL CONGESTION
     Route: 048
     Dates: start: 20140219, end: 20140220

REACTIONS (1)
  - Dysuria [Not Recovered/Not Resolved]
